FAERS Safety Report 8028116-1 (Version None)
Quarter: 2012Q1

REPORT INFORMATION
  Report Type: 
  Country: None (occurrence: None)
  Receive Date: 20120104
  Receipt Date: 20111219
  Transmission Date: 20120608
  Serious: Yes (Other)
  Sender: FDA-Public Use
  Company Number: TPA2011A06444

PATIENT
  Age: 72 Year
  Sex: Male
  Weight: 93.8946 kg

DRUGS (2)
  1. ACTOS [Suspect]
     Indication: TYPE 2 DIABETES MELLITUS
     Dosage: 15 MG, 1 IN 1 D, 45 MG, 1 IN 1D
     Dates: end: 20110801
  2. ACTOS [Suspect]
     Indication: TYPE 2 DIABETES MELLITUS
     Dosage: 15 MG, 1 IN 1 D, 45 MG, 1 IN 1D
     Dates: start: 20010201

REACTIONS (4)
  - BLADDER CANCER [None]
  - PYURIA [None]
  - MICTURITION URGENCY [None]
  - POLLAKIURIA [None]
